FAERS Safety Report 6273040-8 (Version None)
Quarter: 2009Q3

REPORT INFORMATION
  Report Type: 
  Country: None (occurrence: None)
  Receive Date: 20090715
  Receipt Date: 20090715
  Transmission Date: 20100115
  Serious: Yes (Life-Threatening, Hospitalization)
  Sender: FDA-Public Use
  Company Number: None

PATIENT
  Sex: Female
  Weight: 58.9676 kg

DRUGS (1)
  1. PHENYTOIN [Suspect]
     Indication: CONVULSION
     Dosage: 100 MG 200 MG IN AM 10 MG PM PO
     Route: 048

REACTIONS (2)
  - PRODUCT QUALITY ISSUE [None]
  - THERAPEUTIC AGENT TOXICITY [None]
